FAERS Safety Report 8215791-1 (Version None)
Quarter: 2012Q1

REPORT INFORMATION
  Report Type: 
  Country: None (occurrence: None)
  Receive Date: 20120313
  Receipt Date: 20120307
  Transmission Date: 20120608
  Serious: Yes (Death)
  Sender: FDA-Public Use
  Company Number: 2012MA003088

PATIENT
  Age: 49 Year
  Sex: Male

DRUGS (4)
  1. TEMAZEPAM [Suspect]
  2. SOMA [Suspect]
  3. OXYCODONE HCL [Suspect]
  4. ALCOHOL [Suspect]

REACTIONS (4)
  - ROAD TRAFFIC ACCIDENT [None]
  - CHEST INJURY [None]
  - HEAD INJURY [None]
  - NECK INJURY [None]
